FAERS Safety Report 8838018 (Version 1)
Quarter: 2012Q4

REPORT INFORMATION
  Report Type: 
  Country: US (occurrence: US)
  Receive Date: 20121012
  Receipt Date: 20121012
  Transmission Date: 20130627
  Serious: Yes (Death)
  Sender: FDA-Public Use
  Company Number: US-ROCHE-1118637

PATIENT
  Sex: Female

DRUGS (3)
  1. NUTROPIN [Suspect]
     Indication: RENAL FAILURE CHRONIC
  2. NUTROPIN [Suspect]
     Indication: AZOTAEMIA
  3. EPOGEN [Concomitant]

REACTIONS (2)
  - Death [Fatal]
  - Drug ineffective [Unknown]
